FAERS Safety Report 8588182 (Version 2)
Quarter: 2013Q1

REPORT INFORMATION
  Report Type: Spontaneous
  Country: US (occurrence: US)
  Receive Date: 20120531
  Receipt Date: 20130314
  Transmission Date: 20140127
  Serious: Yes (Other)
  Sender: FDA-Public Use
  Company Number: US-ROCHE-1073593

PATIENT
  Age: 63 None
  Sex: Female
  Weight: 65.83 kg

DRUGS (2)
  1. ACCUTANE [Suspect]
     Indication: ACNE
     Route: 065
     Dates: start: 19870101, end: 19871231
  2. ACCUTANE [Suspect]
     Route: 065
     Dates: end: 1988

REACTIONS (6)
  - Inflammatory bowel disease [Unknown]
  - Proctitis [Unknown]
  - Depression [Unknown]
  - Injury [Unknown]
  - Irritable bowel syndrome [Unknown]
  - Osteoporosis [Unknown]
